FAERS Safety Report 17556697 (Version 1)
Quarter: 2020Q1

REPORT INFORMATION
  Report Type: Spontaneous
  Country: CA (occurrence: CA)
  Receive Date: 20200318
  Receipt Date: 20200318
  Transmission Date: 20200409
  Serious: Yes (Hospitalization)
  Sender: FDA-Public Use
  Company Number: CA-WEST THERAPEUTIC DEVELOPMENT-2020WTD00006

PATIENT
  Age: 52 Year
  Sex: Male

DRUGS (1)
  1. FENTANYL. [Suspect]
     Active Substance: FENTANYL
     Route: 065

REACTIONS (7)
  - Amnestic disorder [Recovering/Resolving]
  - Delirium [Recovered/Resolved]
  - Brain injury [Recovering/Resolving]
  - Leukoencephalopathy [Recovering/Resolving]
  - Hypoventilation [Recovered/Resolved]
  - Overdose [Recovered/Resolved]
  - Loss of consciousness [Recovered/Resolved]
